FAERS Safety Report 5199714-8 (Version None)
Quarter: 2007Q1

REPORT INFORMATION
  Report Type: 
  Country: None (occurrence: None)
  Receive Date: 20070105
  Receipt Date: 20070102
  Transmission Date: 20070707
  Serious: Yes (Hospitalization, Other)
  Sender: FDA-Public Use
  Company Number: US-JNJFOC-20070100498

PATIENT
  Sex: Male
  Weight: 67.59 kg

DRUGS (3)
  1. REMICADE [Suspect]
     Indication: ANKYLOSING SPONDYLITIS
  2. REMICADE [Suspect]
     Indication: PSORIATIC ARTHROPATHY
  3. PREDNISONE TAB [Concomitant]

REACTIONS (1)
  - TUBERCULOSIS [None]
